FAERS Safety Report 12217255 (Version 1)
Quarter: 2016Q1

REPORT INFORMATION
  Report Type: Spontaneous
  Country: US (occurrence: None)
  Receive Date: 20160328
  Receipt Date: 20160328
  Transmission Date: 20160526
  Serious: No
  Sender: FDA-Public Use
  Company Number: None

PATIENT
  Age: 55 Year
  Sex: Female

DRUGS (2)
  1. CYCLOSPORINE MODIFIED 100 MG WATSON [Suspect]
     Active Substance: CYCLOSPORINE
     Indication: DERMATITIS ATOPIC
     Dosage: 1 CAPSULE EVERY MORNING ORAL
     Route: 048
     Dates: start: 20160104
  2. CYCLOSPORINE MODIFIED 100 MG WATSON [Suspect]
     Active Substance: CYCLOSPORINE
     Indication: DERMATITIS ATOPIC
     Dosage: 2 CAPSULES WITH DINNER ORAL
     Route: 048
     Dates: start: 20160104

REACTIONS (3)
  - Aphthous ulcer [None]
  - Candida infection [None]
  - Abdominal discomfort [None]

NARRATIVE: CASE EVENT DATE: 20160104
